APPROVED DRUG PRODUCT: ZINC SULFATE
Active Ingredient: ZINC SULFATE
Strength: EQ 10MG BASE/10ML (EQ 1MG BASE/ML)
Dosage Form/Route: SOLUTION;INTRAVENOUS
Application: A218059 | Product #002 | TE Code: AP
Applicant: APOTEX INC
Approved: Oct 28, 2024 | RLD: No | RS: No | Type: RX